FAERS Safety Report 6500005-0 (Version None)
Quarter: 2009Q4

REPORT INFORMATION
  Report Type: 
  Country: None (occurrence: None)
  Receive Date: 20091216
  Receipt Date: 20091207
  Transmission Date: 20100525
  Serious: Yes (Hospitalization)
  Sender: FDA-Public Use
  Company Number: US-WYE-H11590409

PATIENT
  Sex: Male
  Weight: 51.3 kg

DRUGS (4)
  1. PRISTIQ [Suspect]
     Indication: DEPRESSION
     Route: 048
     Dates: start: 20090801, end: 20090930
  2. PEGASYS [Suspect]
     Indication: HEPATITIS C
     Dates: start: 20090401, end: 20091001
  3. COPEGUS [Concomitant]
     Indication: HEPATITIS C
     Route: 048
     Dates: start: 20090401, end: 20091001
  4. ETHANOL [Suspect]

REACTIONS (11)
  - DECREASED APPETITE [None]
  - DEHYDRATION [None]
  - DIABETES MELLITUS [None]
  - DIABETIC KETOACIDOSIS [None]
  - FEELING ABNORMAL [None]
  - NAUSEA [None]
  - PANCREATIC DISORDER [None]
  - THINKING ABNORMAL [None]
  - TOOTH ABSCESS [None]
  - VOMITING [None]
  - WEIGHT DECREASED [None]
